FAERS Safety Report 17613191 (Version 1)
Quarter: 2020Q2

REPORT INFORMATION
  Report Type: Spontaneous
  Country: IT (occurrence: IT)
  Receive Date: 20200402
  Receipt Date: 20200402
  Transmission Date: 20200713
  Serious: Yes (Other)
  Sender: FDA-Public Use
  Company Number: IT-TEVA-2020-IT-1215297

PATIENT
  Age: 80 Year
  Sex: Male

DRUGS (7)
  1. CARDIOASPIRIN [Concomitant]
     Active Substance: ASPIRIN
  2. PANTORC [Concomitant]
     Active Substance: PANTOPRAZOLE SODIUM
  3. IPERTEN [Concomitant]
     Active Substance: MANIDIPINE
  4. BISOPROLOL FUMARATE. [Concomitant]
     Active Substance: BISOPROLOL FUMARATE
  5. ALLOPURINOLO TEVA [Suspect]
     Active Substance: ALLOPURINOL
     Route: 048
  6. LASIX [Concomitant]
     Active Substance: FUROSEMIDE
  7. INEGY [Concomitant]
     Active Substance: EZETIMIBE\SIMVASTATIN

REACTIONS (2)
  - Angioedema [Unknown]
  - Dermatitis allergic [Unknown]

NARRATIVE: CASE EVENT DATE: 20191120
